FAERS Safety Report 6505656-5 (Version None)
Quarter: 2009Q4

REPORT INFORMATION
  Report Type: 
  Country: None (occurrence: None)
  Receive Date: 20091217
  Receipt Date: 20091217
  Transmission Date: 20100525
  Serious: Yes (Other)
  Sender: FDA-Public Use
  Company Number: None

PATIENT
  Age: 4 Year
  Sex: Male
  Weight: 18.1439 kg

DRUGS (1)
  1. TRIAMINIC SRT [Suspect]
     Indication: COUGH
     Dosage: 1 TSP EVERY 5 HOURS PO
     Route: 048
     Dates: start: 20091215, end: 20091216

REACTIONS (3)
  - DIZZINESS [None]
  - FALL [None]
  - MOUTH INJURY [None]
